FAERS Safety Report 4770718-X (Version None)
Quarter: 2005Q3

REPORT INFORMATION
  Report Type: 
  Country: None (occurrence: None)
  Receive Date: 20050914
  Receipt Date: 20041126
  Transmission Date: 20060218
  Serious: Yes (Hospitalization)
  Sender: FDA-Public Use
  Company Number: 2004238696SE

PATIENT
  Age: 66 Year
  Sex: Female

DRUGS (6)
  1. ADRIAMYCIN PFS [Suspect]
     Indication: LYMPHOMA
     Dosage: 80 MG (CYCLICAL), INTRAVENOUS
     Route: 042
     Dates: end: 20040929
  2. CYCLOPHOSPHAMIDE [Suspect]
     Indication: LYMPHOMA
     Dosage: 1200 MG (CYCLICAL), INTRAVENOUS
     Route: 042
     Dates: start: 20040929
  3. ONCOVIN [Suspect]
     Indication: LYMPHOMA
     Dosage: 2 MG, INTRAVENOUS
     Route: 042
     Dates: start: 20040929
  4. DELTISON (CALCIUM PHOSPHATE, MAGNESIUM TRISILICATE, PREDNISONE) [Suspect]
     Indication: ILL-DEFINED DISORDER
     Dosage: 50 MG ORAL
     Route: 048
     Dates: start: 20040929
  5. SOFARIN (DICLOFENAC SODIUM) [Suspect]
     Indication: ILL-DEFINED DISORDER
     Dosage: 8 MG, INTRAVENOUS
     Route: 042
     Dates: start: 20040929
  6. ALLOPURINOL [Suspect]
     Indication: ILL-DEFINED DISORDER
     Dosage: 300 MG, ORAL
     Route: 048
     Dates: start: 20040929

REACTIONS (1)
  - COLITIS ISCHAEMIC [None]
